FAERS Safety Report 5763243-0 (Version None)
Quarter: 2008Q2

REPORT INFORMATION
  Report Type: 
  Country: None (occurrence: None)
  Receive Date: 20080604
  Receipt Date: 20080604
  Transmission Date: 20081010
  Serious: Yes (Other)
  Sender: FDA-Public Use
  Company Number: None

PATIENT
  Sex: Male
  Weight: 56.6996 kg

DRUGS (1)
  1. LAMICTAL [Suspect]
     Indication: CONVULSION
     Dosage: 100 MG 2XDAY PO
     Route: 048

REACTIONS (4)
  - CONVULSION [None]
  - OVERDOSE [None]
  - REACTION TO AZO-DYES [None]
  - THERAPEUTIC AGENT TOXICITY [None]
